FAERS Safety Report 10213387 (Version 1)
Quarter: 2014Q2

REPORT INFORMATION
  Report Type: Spontaneous
  Country: GB (occurrence: None)
  Receive Date: 20140529
  Receipt Date: 20140529
  Transmission Date: 20141212
  Serious: Yes (Hospitalization)
  Sender: FDA-Public Use
  Company Number: 2357477

PATIENT
  Age: 14 Year
  Sex: Male

DRUGS (5)
  1. METHOTREXATE [Suspect]
     Indication: HODGKIN^S DISEASE
  2. VINCRISTINE SULFATE [Suspect]
     Indication: HODGKIN^S DISEASE
  3. DOXORUBICIN HYDROCHLORIDE [Suspect]
     Indication: HODGKIN^S DISEASE
  4. CYCLOPHOSPHAMIDE [Suspect]
     Indication: HODGKIN^S DISEASE
  5. PREDNISOLONE [Suspect]
     Indication: HODGKIN^S DISEASE

REACTIONS (2)
  - Pneumoperitoneum [None]
  - Pneumatosis intestinalis [None]
